FAERS Safety Report 6466239-9 (Version None)
Quarter: 2009Q4

REPORT INFORMATION
  Report Type: 
  Country: None (occurrence: None)
  Receive Date: 20091202
  Receipt Date: 20091123
  Transmission Date: 20100525
  Serious: Yes (Hospitalization)
  Sender: FDA-Public Use
  Company Number: PHHY2009RS51519

PATIENT
  Age: 41 Year
  Sex: Male

DRUGS (3)
  1. LEPONEX [Suspect]
     Indication: SCHIZOPHRENIA
     Dosage: 250 MG
  2. MODITEN-DEPO [Concomitant]
  3. FLUPHENAZINE [Concomitant]

REACTIONS (3)
  - AMIMIA [None]
  - DYSARTHRIA [None]
  - TREMOR [None]
